FAERS Safety Report 14739100 (Version 1)
Quarter: 2018Q2

REPORT INFORMATION
  Report Type: Report from Study
  Country: US (occurrence: US)
  Receive Date: 20180410
  Receipt Date: 20180410
  Transmission Date: 20180711
  Serious: Yes (Other)
  Sender: FDA-Public Use
  Company Number: US-ROCHE-1983570

PATIENT
  Age: 74 Year
  Sex: Male
  Weight: 78.4 kg

DRUGS (12)
  1. ATEZOLIZUMAB. [Suspect]
     Active Substance: ATEZOLIZUMAB
     Dosage: REGIMEN #3 C2D1
     Route: 042
     Dates: start: 20170615
  2. CPI-444 [Suspect]
     Active Substance: CIFORADENANT
     Indication: NON-SMALL CELL LUNG CANCER
     Dosage: REGIMEN #1 C1D1
     Route: 048
     Dates: start: 20170515
  3. ATEZOLIZUMAB. [Suspect]
     Active Substance: ATEZOLIZUMAB
     Dosage: REGIMEN #3 C3D1
     Route: 042
     Dates: start: 20170713
  4. CPI-444 [Suspect]
     Active Substance: CIFORADENANT
     Dosage: REGIMEN #3 C3D1
     Route: 048
     Dates: start: 20170713, end: 20170725
  5. TYLENOL [Concomitant]
     Active Substance: ACETAMINOPHEN
     Route: 065
     Dates: start: 20170518
  6. ATEZOLIZUMAB. [Suspect]
     Active Substance: ATEZOLIZUMAB
     Dosage: REGIMEN #2 C1D15
     Route: 042
     Dates: start: 20170530
  7. CPI-444 [Suspect]
     Active Substance: CIFORADENANT
     Dosage: REGIMEN #2 C2D1
     Route: 048
     Dates: start: 20170615
  8. JOINT CARE (UNITED STATES) [Concomitant]
     Route: 065
     Dates: start: 201601
  9. ENOXAPARIN [Concomitant]
     Active Substance: ENOXAPARIN
     Route: 065
     Dates: start: 20170407
  10. ATEZOLIZUMAB. [Suspect]
     Active Substance: ATEZOLIZUMAB
     Indication: NON-SMALL CELL LUNG CANCER
     Dosage: REGIMEN #1 C1D1
     Route: 042
     Dates: start: 20170515
  11. ATEZOLIZUMAB. [Suspect]
     Active Substance: ATEZOLIZUMAB
     Dosage: REGIMEN #3 C2D15
     Route: 042
     Dates: start: 20170629
  12. HYZAAR [Concomitant]
     Active Substance: HYDROCHLOROTHIAZIDE\LOSARTAN POTASSIUM
     Route: 065
     Dates: start: 201601

REACTIONS (2)
  - Neutropenia [Recovered/Resolved]
  - White blood cell count decreased [Recovered/Resolved]

NARRATIVE: CASE EVENT DATE: 20170725
